FAERS Safety Report 18047581 (Version 1)
Quarter: 2020Q3

REPORT INFORMATION
  Report Type: Spontaneous
  Country: US (occurrence: US)
  Receive Date: 20200721
  Receipt Date: 20200721
  Transmission Date: 20201103
  Serious: No
  Sender: FDA-Public Use
  Company Number: US-TAKEDA-2020TUS031475

PATIENT
  Sex: Male

DRUGS (13)
  1. REVLIMID [Suspect]
     Active Substance: LENALIDOMIDE
     Indication: PRODUCT USED FOR UNKNOWN INDICATION
     Dosage: UNK
     Route: 065
  2. CARVEDILOL. [Concomitant]
     Active Substance: CARVEDILOL
     Route: 065
  3. FUROSEMIDE. [Concomitant]
     Active Substance: FUROSEMIDE
     Dosage: UNK
     Route: 065
  4. POTASSIUM [Concomitant]
     Active Substance: POTASSIUM
     Dosage: UNK
     Route: 065
  5. NINLARO [Suspect]
     Active Substance: IXAZOMIB CITRATE
     Indication: PLASMA CELL MYELOMA
     Dosage: 4 MILLIGRAM
     Route: 048
  6. ACYCLOVIR                          /00587301/ [Concomitant]
     Active Substance: ACYCLOVIR
     Route: 065
  7. ELIQUIS [Concomitant]
     Active Substance: APIXABAN
     Dosage: UNK
     Route: 065
  8. IRBESARTAN. [Concomitant]
     Active Substance: IRBESARTAN
     Dosage: UNK
     Route: 065
  9. OMEPRAZOLE. [Concomitant]
     Active Substance: OMEPRAZOLE
     Dosage: UNK
     Route: 065
  10. ASPIRIN                            /00002701/ [Concomitant]
     Active Substance: ASPIRIN
     Route: 065
  11. DEXAMETHASONE. [Concomitant]
     Active Substance: DEXAMETHASONE
     Dosage: UNK
     Route: 065
  12. ALLOPURINOL. [Concomitant]
     Active Substance: ALLOPURINOL
     Route: 065
  13. FERROUS SULFATE. [Concomitant]
     Active Substance: FERROUS SULFATE
     Dosage: UNK
     Route: 065

REACTIONS (1)
  - Drug intolerance [Unknown]
